FAERS Safety Report 9697579 (Version 8)
Quarter: 2014Q2

REPORT INFORMATION
  Report Type: Spontaneous
  Country: IT (occurrence: IT)
  Receive Date: 20131120
  Receipt Date: 20140403
  Transmission Date: 20141212
  Serious: Yes (Hospitalization)
  Sender: FDA-Public Use
  Company Number: IT-VERTEX PHARMACEUTICALS INC-2013-011178

PATIENT
  Age: 61 Year
  Sex: Female
  Weight: 68 kg

DRUGS (5)
  1. INCIVO [Suspect]
     Indication: CHRONIC HEPATITIS C
     Dosage: 3 + 3 TABLETS/DAY
     Route: 048
     Dates: start: 20130816, end: 20131022
  2. PEGASYS [Suspect]
     Indication: CHRONIC HEPATITIS C
     Dosage: 180 ?G, QW
     Route: 058
     Dates: start: 20130719, end: 20131018
  3. REBETOL [Suspect]
     Indication: CHRONIC HEPATITIS C
     Dosage: DOSAGE FORM: UNSPECIFIED
     Route: 048
     Dates: start: 20130927, end: 20131022
  4. ZARZIO [Concomitant]
     Indication: NEUTROPENIA
     Dosage: DOSAGE FORM: UNSPECIFIED
     Route: 058
     Dates: start: 20131011, end: 20131022
  5. NEORECORMON [Concomitant]
     Indication: ANAEMIA
     Dosage: DOSAGE FORM: UNSPECIFIED
     Route: 058
     Dates: start: 20130927, end: 20131114

REACTIONS (1)
  - Septic arthritis staphylococcal [Recovered/Resolved with Sequelae]
